FAERS Safety Report 17251755 (Version 1)
Quarter: 2020Q1

REPORT INFORMATION
  Report Type: Spontaneous
  Country: BE (occurrence: BE)
  Receive Date: 20200109
  Receipt Date: 20200109
  Transmission Date: 20200409
  Serious: Yes (Life-Threatening, Hospitalization)
  Sender: FDA-Public Use
  Company Number: BE-MYLANLABS-2020M1003109

PATIENT
  Age: 71 Year
  Sex: Female

DRUGS (3)
  1. FLECAINIDE [Suspect]
     Active Substance: FLECAINIDE
     Indication: ATRIAL FIBRILLATION
     Dosage: LONG-ACTING
     Route: 065
  2. SOTALOL. [Suspect]
     Active Substance: SOTALOL
     Indication: ATRIAL FIBRILLATION
     Dosage: THREE TIMES A DAY
     Route: 065
  3. DABIGATRAN                         /01633202/ [Concomitant]
     Active Substance: DABIGATRAN
     Indication: ANTICOAGULANT THERAPY
     Dosage: 150 MILLIGRAM
     Route: 065

REACTIONS (11)
  - Overdose [Recovering/Resolving]
  - Cardiac arrest [Recovered/Resolved]
  - Blood pressure decreased [Recovered/Resolved]
  - Haemorrhage [Unknown]
  - Pneumonia [Unknown]
  - Tachycardia [Recovered/Resolved]
  - Nervous system disorder [Recovering/Resolving]
  - Acidosis [Unknown]
  - Hyperlactacidaemia [Unknown]
  - Acute kidney injury [Unknown]
  - Toxicity to various agents [Recovering/Resolving]
